FAERS Safety Report 18350595 (Version 2)
Quarter: 2020Q4

REPORT INFORMATION
  Report Type: Report from Study
  Country: None (occurrence: US)
  Receive Date: 20201006
  Receipt Date: 20201222
  Transmission Date: 20210114
  Serious: Yes (Other)
  Sender: FDA-Public Use
  Company Number: US-ABBVIE-20K-163-3592598-00

PATIENT
  Sex: Female

DRUGS (2)
  1. HUMIRA [Suspect]
     Active Substance: ADALIMUMAB
     Route: 058
     Dates: start: 2020
  2. HUMIRA [Suspect]
     Active Substance: ADALIMUMAB
     Indication: RHEUMATOID ARTHRITIS
     Route: 058
     Dates: start: 20200302, end: 20200930

REACTIONS (12)
  - Impaired self-care [Unknown]
  - Loss of personal independence in daily activities [Unknown]
  - Injection site pruritus [Not Recovered/Not Resolved]
  - Cyst [Unknown]
  - Peripheral swelling [Recovering/Resolving]
  - Injection site erythema [Not Recovered/Not Resolved]
  - Discomfort [Unknown]
  - Pain in extremity [Recovering/Resolving]
  - Joint swelling [Unknown]
  - Joint stiffness [Recovering/Resolving]
  - COVID-19 [Recovered/Resolved]
  - Pain [Unknown]

NARRATIVE: CASE EVENT DATE: 2020
